FAERS Safety Report 21208753 (Version 1)
Quarter: 2022Q3

REPORT INFORMATION
  Report Type: Spontaneous
  Country: US (occurrence: None)
  Receive Date: 20220812
  Receipt Date: 20220812
  Transmission Date: 20221026
  Serious: No
  Sender: FDA-Public Use
  Company Number: None

PATIENT
  Age: 78 Year
  Sex: Female
  Weight: 42.75 kg

DRUGS (4)
  1. PAXLOVID [Suspect]
     Active Substance: NIRMATRELVIR\RITONAVIR
     Indication: COVID-19
     Dosage: OTHER QUANTITY : 3 TABLET(S);?FREQUENCY : TWICE A DAY;?
     Route: 048
  2. LEVOXYL [Concomitant]
     Active Substance: LEVOTHYROXINE SODIUM
  3. LISINOPRIL [Concomitant]
     Active Substance: LISINOPRIL
  4. FAMOTIDINE [Concomitant]
     Active Substance: FAMOTIDINE

REACTIONS (6)
  - Muscle spasms [None]
  - Vomiting [None]
  - Pyrexia [None]
  - Urine flow decreased [None]
  - Dysuria [None]
  - Therapy cessation [None]

NARRATIVE: CASE EVENT DATE: 20220811
